FAERS Safety Report 4980103-3 (Version None)
Quarter: 2006Q2

REPORT INFORMATION
  Report Type: 
  Country: None (occurrence: None)
  Receive Date: 20060421
  Receipt Date: 20051102
  Transmission Date: 20061013
  Serious: Yes (Other)
  Sender: FDA-Public Use
  Company Number: US-MERCK-0511USA00520

PATIENT
  Age: 54 Year
  Sex: Female
  Weight: 59 kg

DRUGS (2)
  1. VIOXX [Suspect]
     Route: 048
     Dates: start: 20040607, end: 20040608
  2. AMOXICILLIN [Concomitant]
     Route: 065

REACTIONS (2)
  - EMOTIONAL DISTRESS [None]
  - MYOCARDIAL INFARCTION [None]
